FAERS Safety Report 9356575 (Version 2)
Quarter: 2013Q2

REPORT INFORMATION
  Report Type: Spontaneous
  Country: JP (occurrence: JP)
  Receive Date: 20130619
  Receipt Date: 20130627
  Transmission Date: 20140414
  Serious: Yes (Hospitalization)
  Sender: FDA-Public Use
  Company Number: PHHY2013JP060782

PATIENT
  Sex: Female

DRUGS (13)
  1. MAPROTILINE [Suspect]
     Indication: GENERALISED ANXIETY DISORDER
     Dosage: 20 MG, DAILY
     Route: 048
  2. DIAZEPAM [Suspect]
     Dosage: 2 MG, UNK
  3. ALPRAZOLAM [Suspect]
     Indication: ANXIETY
     Dosage: 60 DF, PER TWO WEEKS
  4. ALPRAZOLAM [Suspect]
     Dosage: 1.2 MG, (30 DF)
  5. ALPRAZOLAM [Suspect]
     Dosage: 2 MG, (30 DF)
  6. ALPRAZOLAM [Suspect]
     Dosage: 2.4 MG, (30 DF)
  7. LORAZEPAM [Suspect]
     Dosage: 1.5 MG, UNK
  8. BROMAZEPAM [Suspect]
     Dosage: 10 MG, (30 DF)
  9. ETIZOLAN [Suspect]
     Dosage: 1.5 MG, UNK
  10. ETHYL LOFLAZEPATE [Suspect]
     Dosage: 30 DF, UNK
  11. FLUVOXAMINE MALEATE [Concomitant]
     Dosage: 75 MG, UNK
  12. OLANZAPINE [Concomitant]
     Dosage: 5 MG, UNK
  13. QUETIAPINE FUMARATE [Concomitant]
     Dosage: 200 MG, UNK

REACTIONS (10)
  - Anxiety [Unknown]
  - Bipolar disorder [Unknown]
  - Aggression [Unknown]
  - Anger [Unknown]
  - Disinhibition [Recovering/Resolving]
  - Psychiatric symptom [Unknown]
  - Pathological gambling [Unknown]
  - Conversion disorder [Unknown]
  - Neoplasm [Unknown]
  - Drug dependence [Unknown]
